FAERS Safety Report 7438342-8 (Version None)
Quarter: 2011Q2

REPORT INFORMATION
  Report Type: 
  Country: None (occurrence: None)
  Receive Date: 20110426
  Receipt Date: 20110413
  Transmission Date: 20111010
  Serious: Yes (Other)
  Sender: FDA-Public Use
  Company Number: CA-JNJFOC-20110406359

PATIENT
  Sex: Male
  Weight: 65.9 kg

DRUGS (5)
  1. VITAMIN B6 [Concomitant]
     Route: 065
  2. REMICADE [Suspect]
     Indication: CROHN'S DISEASE
     Route: 042
  3. PREDNISONE [Concomitant]
     Route: 065
  4. METHOTREXATE [Concomitant]
     Route: 065
  5. ISONIAZID [Concomitant]
     Indication: TUBERCULOSIS
     Route: 065

REACTIONS (1)
  - INTESTINAL RESECTION [None]
